FAERS Safety Report 7899027 (Version 2)
Quarter: 2013Q4

REPORT INFORMATION
  Report Type: Spontaneous
  Country: AU (occurrence: None)
  Receive Date: 20110323
  Receipt Date: 20131119
  Transmission Date: 20140711
  Serious: Yes (Death, Other)
  Sender: FDA-Public Use
  Company Number: 20110184

PATIENT
  Sex: Female

DRUGS (2)
  1. METHYLENE BLUE [Suspect]
     Indication: SURGERY
     Dosage: 7.5 MG/KG;
  2. SSRI [Concomitant]

REACTIONS (5)
  - Toxicity to various agents [None]
  - Nervous system disorder [None]
  - Toxic encephalopathy [None]
  - Off label use [None]
  - Metabolic encephalopathy [None]
